FAERS Safety Report 6724857-4 (Version None)
Quarter: 2010Q2

REPORT INFORMATION
  Report Type: 
  Country: None (occurrence: None)
  Receive Date: 20100513
  Receipt Date: 20100513
  Transmission Date: 20101027
  Serious: No
  Sender: FDA-Public Use
  Company Number: None

PATIENT
  Sex: Male

DRUGS (1)
  1. SINGULAIR [Suspect]
     Indication: ASTHMA
     Dosage: SINGULAIR 4MG GRANULES DAILY ORAL
     Route: 048
     Dates: start: 20091221, end: 20100416

REACTIONS (1)
  - AGGRESSION [None]
